FAERS Safety Report 24015736 (Version 1)
Quarter: 2024Q2

REPORT INFORMATION
  Report Type: Spontaneous
  Country: DE (occurrence: DE)
  Receive Date: 20240626
  Receipt Date: 20240626
  Transmission Date: 20240716
  Serious: Yes (Life-Threatening, Hospitalization)
  Sender: FDA-Public Use
  Company Number: DE-ROCHE-2924456

PATIENT
  Age: 60 Year
  Sex: Female
  Weight: 69 kg

DRUGS (54)
  1. CARBOPLATIN [Suspect]
     Active Substance: CARBOPLATIN
     Indication: Non-small cell lung cancer metastatic
     Dosage: 390 MG
     Route: 042
     Dates: start: 20210802
  2. CARBOPLATIN [Suspect]
     Active Substance: CARBOPLATIN
     Dosage: 393 MG
     Route: 065
     Dates: start: 20210827
  3. CARBOPLATIN [Suspect]
     Active Substance: CARBOPLATIN
     Dosage: UNK
     Route: 065
     Dates: start: 20211014
  4. PEMETREXED [Suspect]
     Active Substance: PEMETREXED
     Dosage: 885 MG
     Route: 065
     Dates: start: 20210827
  5. PEMETREXED [Suspect]
     Active Substance: PEMETREXED
     Indication: Hypokalaemia
     Dosage: 887.5 MG
     Route: 042
     Dates: start: 20210802
  6. PEMETREXED [Suspect]
     Active Substance: PEMETREXED
     Dosage: UNK
     Route: 065
     Dates: start: 20211014
  7. AKYNZEO [Concomitant]
     Indication: Peritonitis
     Dosage: 1000 UG
     Route: 065
     Dates: start: 20210827, end: 20210827
  8. ALBUMIN HUMAN [Concomitant]
     Active Substance: ALBUMIN HUMAN
     Dosage: UNK
     Route: 065
  9. ALBUMIN HUMAN [Concomitant]
     Active Substance: ALBUMIN HUMAN
     Indication: Prophylaxis of nausea and vomiting
     Dosage: 200 ML
     Route: 065
     Dates: start: 20210802
  10. ALBUMIN HUMAN [Concomitant]
     Active Substance: ALBUMIN HUMAN
     Indication: Prophylaxis of nausea and vomiting
     Dosage: UNK
     Route: 065
     Dates: start: 20210827
  11. ALBUMIN HUMAN [Concomitant]
     Active Substance: ALBUMIN HUMAN
     Dosage: UNK
     Route: 065
     Dates: start: 20211014
  12. CEFTRIAXONE [Concomitant]
     Active Substance: CEFTRIAXONE\CEFTRIAXONE SODIUM
     Indication: Thrombocytopenia
     Dosage: 2 G
     Route: 065
     Dates: start: 20210821, end: 20210902
  13. ENOXAPARIN SODIUM [Concomitant]
     Active Substance: ENOXAPARIN SODIUM
     Dosage: 0.2 MG
     Route: 065
     Dates: start: 20210906
  14. ENOXAPARIN SODIUM [Concomitant]
     Active Substance: ENOXAPARIN SODIUM
     Indication: Embolism
     Dosage: 0.4 MG
     Route: 065
     Dates: start: 20210905
  15. ENOXAPARIN SODIUM [Concomitant]
     Active Substance: ENOXAPARIN SODIUM
     Indication: Thrombosis
     Dosage: 0.2
     Route: 065
     Dates: start: 20211104
  16. DEXAMETHASONE [Concomitant]
     Active Substance: DEXAMETHASONE
     Indication: Infection
     Dosage: 8 MG
     Route: 065
     Dates: start: 20210802, end: 20210802
  17. DULOXETINE [Concomitant]
     Active Substance: DULOXETINE
     Indication: Product used for unknown indication
     Dosage: 15 MG
     Route: 065
  18. DULOXETINE [Concomitant]
     Active Substance: DULOXETINE
     Dosage: 60 MG
     Route: 065
     Dates: start: 20210922
  19. FOLIC ACID [Concomitant]
     Active Substance: FOLIC ACID
     Indication: Product used for unknown indication
     Dosage: 300 MG
     Route: 065
     Dates: start: 20210802, end: 20210802
  20. GLANDOMED [Concomitant]
     Indication: Product used for unknown indication
     Dosage: 0.4 MG
     Route: 065
     Dates: start: 20210726, end: 20210831
  21. IODINE [Concomitant]
     Active Substance: IODINE
     Indication: Iodine deficiency
     Dosage: 100 UG
     Route: 065
     Dates: start: 20210921
  22. POTASSIUM CARBONATE\POTASSIUM CITRATE [Concomitant]
     Active Substance: POTASSIUM CARBONATE\POTASSIUM CITRATE
     Indication: Anaemia
     Dosage: 4000 MG
     Route: 065
     Dates: start: 20210904, end: 20210904
  23. Kalinor-retard [Concomitant]
     Indication: Restlessness
     Dosage: 36 MG
     Route: 065
     Dates: start: 20211101, end: 20211101
  24. POTASSIUM CHLORIDE [Concomitant]
     Active Substance: POTASSIUM CHLORIDE
     Indication: Product used for unknown indication
     Dosage: UNK
     Route: 065
  25. POTASSIUM CHLORIDE [Concomitant]
     Active Substance: POTASSIUM CHLORIDE
     Dosage: UNK
     Route: 065
     Dates: start: 20210802
  26. POTASSIUM CHLORIDE [Concomitant]
     Active Substance: POTASSIUM CHLORIDE
     Dosage: UNK
     Route: 065
     Dates: start: 20210827
  27. POTASSIUM CHLORIDE [Concomitant]
     Active Substance: POTASSIUM CHLORIDE
     Dosage: UNK
     Route: 065
     Dates: start: 20211014
  28. KOCHSALZ [Concomitant]
     Indication: Peritonitis
     Dosage: 1000 MG
     Route: 065
     Dates: start: 20210907
  29. LEVOFLOXACIN [Concomitant]
     Active Substance: LEVOFLOXACIN
     Indication: Non-small cell lung cancer metastatic
     Dosage: 1000 MG
     Route: 065
     Dates: start: 20210902, end: 20210916
  30. MAGNESIUM [Concomitant]
     Active Substance: MAGNESIUM
     Indication: Depression
     Dosage: 100 ML
     Route: 065
     Dates: start: 20210829, end: 20210829
  31. MCP [Concomitant]
     Active Substance: METOCLOPRAMIDE HYDROCHLORIDE
     Indication: Product used for unknown indication
     Dosage: 1.8 G
     Route: 065
     Dates: start: 20211104
  32. METRONIDAZOLE [Concomitant]
     Active Substance: METRONIDAZOLE
     Indication: Product used for unknown indication
     Dosage: 1 DOSE
     Route: 065
     Dates: start: 20211031, end: 20211031
  33. METRONIDAZOLE [Concomitant]
     Active Substance: METRONIDAZOLE
     Dosage: 1 DOSE
     Route: 065
     Dates: start: 20211105, end: 20211105
  34. MIRTAZAPINE [Concomitant]
     Active Substance: MIRTAZAPINE
     Indication: Product used for unknown indication
     Dosage: 500 MG
     Route: 065
     Dates: start: 20210821, end: 20210902
  35. MOXIFLOXACIN [Concomitant]
     Active Substance: MOXIFLOXACIN
     Indication: Product used for unknown indication
     Dosage: 5 MG
     Route: 065
     Dates: start: 20210827, end: 20210921
  36. PANTOPRAZOLE [Concomitant]
     Active Substance: PANTOPRAZOLE
     Indication: Product used for unknown indication
     Dosage: 10 MG
     Route: 065
  37. PEMBROLIZUMAB [Concomitant]
     Active Substance: PEMBROLIZUMAB
     Indication: Hypokalaemia
     Dosage: 20 MG
     Route: 065
     Dates: start: 20210826, end: 20210921
  38. PERENTEROL [Concomitant]
     Active Substance: SACCHAROMYCES CEREVISIAE
     Indication: Product used for unknown indication
     Dosage: 10 MG
     Route: 065
     Dates: start: 20210920
  39. PIPAMPERONE [Concomitant]
     Active Substance: PIPAMPERONE
     Indication: Thrombocytopenia
     Dosage: 2
     Route: 065
     Dates: start: 20211122, end: 20211122
  40. PIPAMPERONE [Concomitant]
     Active Substance: PIPAMPERONE
     Dosage: 2
     Route: 065
     Dates: start: 20211029, end: 20211029
  41. PLATELETS [Concomitant]
     Active Substance: HUMAN PLATELET, ALLOGENIC
     Indication: Depression
     Dosage: 1 MG
     Route: 065
     Dates: start: 20210824, end: 20210824
  42. HUMAN RED BLOOD CELL [Concomitant]
     Active Substance: HUMAN RED BLOOD CELL
     Dosage: 1200 MG
     Route: 065
     Dates: start: 20210827, end: 20210828
  43. HUMAN RED BLOOD CELL [Concomitant]
     Active Substance: HUMAN RED BLOOD CELL
     Dosage: 1200 MG
     Route: 065
     Dates: start: 20210828, end: 20210828
  44. HUMAN RED BLOOD CELL [Concomitant]
     Active Substance: HUMAN RED BLOOD CELL
     Dosage: 1200 MG
     Route: 065
     Dates: start: 20210901, end: 20210911
  45. HUMAN RED BLOOD CELL [Concomitant]
     Active Substance: HUMAN RED BLOOD CELL
     Dosage: 1200 MG
     Route: 065
     Dates: start: 20210901, end: 20210911
  46. HUMAN RED BLOOD CELL [Concomitant]
     Active Substance: HUMAN RED BLOOD CELL
     Indication: Non-small cell lung cancer metastatic
     Dosage: 200 MG
     Route: 065
     Dates: start: 20210828, end: 20210828
  47. HUMAN RED BLOOD CELL [Concomitant]
     Active Substance: HUMAN RED BLOOD CELL
     Dosage: 4000 MG
     Route: 065
     Dates: start: 20210831, end: 20210831
  48. HUMAN RED BLOOD CELL [Concomitant]
     Active Substance: HUMAN RED BLOOD CELL
     Dosage: 4000 MG
     Route: 065
     Dates: start: 20210831, end: 20210831
  49. HUMAN RED BLOOD CELL [Concomitant]
     Active Substance: HUMAN RED BLOOD CELL
     Dosage: 4000 MG
     Route: 065
     Dates: start: 20210904, end: 20210904
  50. Tavor [Concomitant]
     Indication: Peritonitis
     Dosage: 40 MG
     Route: 065
     Dates: start: 20210827
  51. PIPERACILLIN SODIUM\TAZOBACTAM SODIUM [Concomitant]
     Active Substance: PIPERACILLIN SODIUM\TAZOBACTAM SODIUM
     Indication: Neutropenic infection
     Dosage: 4.5 G, QD
     Route: 065
     Dates: start: 20211030, end: 20211108
  52. TORSEMIDE [Concomitant]
     Active Substance: TORSEMIDE
     Indication: Product used for unknown indication
     Dosage: 40 MG
     Route: 065
     Dates: start: 20211102
  53. VITAMIN B12 [Concomitant]
     Active Substance: CYANOCOBALAMIN
     Indication: Osteoporosis
     Dosage: UNK
     Route: 065
  54. ZOPICLONE [Concomitant]
     Active Substance: ZOPICLONE
     Indication: Restlessness
     Dosage: 7.5 MG
     Route: 065
     Dates: start: 20210826

REACTIONS (1)
  - Leukopenia [Recovered/Resolved]

NARRATIVE: CASE EVENT DATE: 20210901
